FAERS Safety Report 8308652-0 (Version None)
Quarter: 2012Q2

REPORT INFORMATION
  Report Type: 
  Country: None (occurrence: None)
  Receive Date: 20120421
  Receipt Date: 20120421
  Transmission Date: 20120825
  Serious: No
  Sender: FDA-Public Use
  Company Number: None

PATIENT
  Age: 69 Year
  Sex: Male

DRUGS (1)
  1. AFINITOR [Suspect]
     Dosage: 10 MG ONCE DAILY PO
     Route: 048
     Dates: start: 20111101, end: 20120130

REACTIONS (2)
  - CARDIAC FAILURE CONGESTIVE [None]
  - FLUID RETENTION [None]
